FAERS Safety Report 9229865 (Version 1)
Quarter: 2013Q2

REPORT INFORMATION
  Report Type: Spontaneous
  Country: US (occurrence: None)
  Receive Date: 20130411
  Receipt Date: 20130411
  Transmission Date: 20140414
  Serious: Yes (Hospitalization)
  Sender: FDA-Public Use
  Company Number: AUR-APL-2013-02911

PATIENT
  Sex: Female

DRUGS (10)
  1. LISINOPRIL (LISINOPRIL) [Suspect]
     Indication: HYPERTENSION
  2. CYCLOBENZAPRINE (CYCLOBENZAPRINE) [Concomitant]
  3. FERROUS SULFATE (FERROUS SULFATE) [Concomitant]
  4. HYDROCODONE W/ACETAMINOPHEN (VICODIN) [Concomitant]
  5. LEVOTHYROXINE SODIUM (LEVOTHROXINE SODIUM) [Concomitant]
  6. ETHINYLESTRADIOL (ETHINYLESTRADIOL) [Concomitant]
  7. NORETHINDRONE (NORETHISTERONE) [Concomitant]
  8. PAROXETINE (PAROXETINE) [Concomitant]
  9. PROMETHAZINE (PROMETHAZINE) [Concomitant]
  10. RABEPRAZOLE (RABEPRAZOLE) [Concomitant]

REACTIONS (1)
  - Small bowel angioedema [None]
